FAERS Safety Report 6366096-5 (Version None)
Quarter: 2009Q3

REPORT INFORMATION
  Report Type: 
  Country: None (occurrence: None)
  Receive Date: 20090920
  Receipt Date: 20090604
  Transmission Date: 20100115
  Serious: No
  Sender: FDA-Public Use
  Company Number: US-BAUSCH-2009BL002798

PATIENT
  Age: 66 Year
  Sex: Male

DRUGS (4)
  1. NEOMYCIN AND POLYMXIN B SULFATES AND HYDROCORTISONE [Suspect]
     Indication: OTIC EXAMINATION ABNORMAL
     Route: 001
     Dates: start: 20090604, end: 20090604
  2. MULTIPLE VITAMINS [Concomitant]
     Indication: ROUTINE HEALTH MAINTENANCE
     Route: 048
     Dates: start: 19990101
  3. ASPIRIN [Concomitant]
     Route: 048
  4. PYCNOGENOL [Concomitant]
     Indication: ROUTINE HEALTH MAINTENANCE
     Route: 048
     Dates: start: 20090521

REACTIONS (2)
  - EAR DISCOMFORT [None]
  - HYPOACUSIS [None]
